FAERS Safety Report 7798147-5 (Version None)
Quarter: 2011Q4

REPORT INFORMATION
  Report Type: 
  Country: None (occurrence: None)
  Receive Date: 20111004
  Receipt Date: 20110928
  Transmission Date: 20120403
  Serious: Yes (Death, Hospitalization, Other)
  Sender: FDA-Public Use
  Company Number: 201110978

PATIENT
  Sex: Female

DRUGS (1)
  1. LIORESAL [Suspect]
     Indication: MUSCLE SPASTICITY
     Dosage: 290.42 MCG, DAILY, INTRATHECAL
     Route: 037

REACTIONS (3)
  - PNEUMONIA [None]
  - IMPLANT SITE INFECTION [None]
  - MENINGITIS [None]
